FAERS Safety Report 8642856 (Version 2)
Quarter: 2013Q2

REPORT INFORMATION
  Report Type: Report from Study
  Country: FR (occurrence: FR)
  Receive Date: 20120629
  Receipt Date: 20130528
  Transmission Date: 20140414
  Serious: Yes (Hospitalization)
  Sender: FDA-Public Use
  Company Number: FR-MILLENNIUM PHARMACEUTICALS, INC.-2012-04482

PATIENT
  Sex: 0

DRUGS (14)
  1. VELCADE [Suspect]
     Indication: PLASMA CELL MYELOMA
     Dosage: 2.39 MG, UNK
     Route: 065
     Dates: start: 20120529, end: 20120608
  2. REVLIMID [Suspect]
     Indication: PLASMA CELL MYELOMA
     Dosage: 25 MG, UNK
     Route: 065
     Dates: start: 20120529, end: 20120611
  3. DEXAMETHASONE [Suspect]
     Indication: PLASMA CELL MYELOMA
     Dosage: 20 MG, UNK
     Route: 065
     Dates: start: 20110529, end: 20120609
  4. OXYCONTIN [Suspect]
     Indication: BONE PAIN
     Dosage: 20 MG, UNK
     Route: 048
     Dates: start: 20120517
  5. OXYNORM [Suspect]
     Indication: BONE PAIN
     Dosage: 5 MG, UNK
     Route: 048
     Dates: start: 20120517
  6. CRESTOR                            /01588601/ [Concomitant]
     Indication: HYPERCHOLESTEROLAEMIA
     Dosage: 10 MG, UNK
     Route: 048
     Dates: start: 2011
  7. DUPHALAC                           /00163401/ [Concomitant]
     Indication: CONSTIPATION
     Dosage: UNK
     Route: 048
     Dates: start: 20120516
  8. LOXEN [Concomitant]
     Indication: HYPERTENSION
     Dosage: 100 MG, UNK
     Route: 048
     Dates: start: 20120530
  9. AERIUS                             /01398501/ [Concomitant]
     Indication: HERPES ZOSTER
     Dosage: 5 MG, UNK
     Route: 048
     Dates: start: 20120605
  10. ORACILLINE                         /00001801/ [Concomitant]
     Indication: PROPHYLAXIS
     Dosage: UNK
     Route: 048
     Dates: start: 20120601
  11. ZELITREX                           /01269701/ [Concomitant]
     Indication: PROPHYLAXIS
     Dosage: UNK
     Route: 048
     Dates: start: 20120529
  12. KARDEGIC                           /00002703/ [Concomitant]
     Indication: ARTERIAL DISORDER
     Dosage: 160 MG, UNK
     Route: 048
     Dates: start: 2011
  13. LOVENOX [Concomitant]
     Indication: THROMBOSIS PROPHYLAXIS
     Dosage: UNK
     Route: 058
     Dates: start: 20120518
  14. MYOLASTAN [Concomitant]
     Indication: MUSCLE DISORDER
     Dosage: 75 MG, UNK
     Route: 048
     Dates: start: 20120517

REACTIONS (2)
  - Urinary retention [Recovered/Resolved]
  - Constipation [None]
